FAERS Safety Report 13590657 (Version 1)
Quarter: 2017Q2

REPORT INFORMATION
  Report Type: Spontaneous
  Country: US (occurrence: US)
  Receive Date: 20170529
  Receipt Date: 20170529
  Transmission Date: 20170830
  Serious: No
  Sender: FDA-Public Use
  Company Number: US-WEST-WARD PHARMACEUTICALS CORP.-US-H14001-16-02314

PATIENT
  Age: 78 Year
  Sex: Male
  Weight: 96.6 kg

DRUGS (6)
  1. TAXOTERE [Suspect]
     Active Substance: DOCETAXEL
     Indication: PROSTATE CANCER STAGE IV
     Route: 065
     Dates: start: 20151209, end: 20160111
  2. LUPRON [Concomitant]
     Active Substance: LEUPROLIDE ACETATE
     Indication: PROSTATE CANCER STAGE IV
     Route: 030
  3. PREDNISONE. [Suspect]
     Active Substance: PREDNISONE
     Route: 048
     Dates: end: 20160201
  4. BICALUTAMIDE. [Concomitant]
     Active Substance: BICALUTAMIDE
     Indication: PROSTATE CANCER STAGE IV
     Route: 065
  5. PREDNISONE. [Suspect]
     Active Substance: PREDNISONE
     Indication: PROSTATE CANCER STAGE IV
     Route: 048
     Dates: start: 20151209
  6. TAXOTERE [Suspect]
     Active Substance: DOCETAXEL
     Route: 065
     Dates: start: 20160111, end: 20160201

REACTIONS (20)
  - Nausea [Not Recovered/Not Resolved]
  - Urinary incontinence [Unknown]
  - Dysgeusia [Unknown]
  - Fall [Recovered/Resolved]
  - Constipation [Unknown]
  - Cough [Unknown]
  - Confusional state [Unknown]
  - Vomiting [Unknown]
  - Asthenia [Unknown]
  - Blood potassium abnormal [Unknown]
  - Tachycardia [Recovered/Resolved]
  - Oedema peripheral [Recovering/Resolving]
  - Weight decreased [Unknown]
  - Pain [Unknown]
  - Dehydration [Unknown]
  - Dizziness [Unknown]
  - Laceration [Unknown]
  - Haemoptysis [Unknown]
  - Dyspepsia [Unknown]
  - White blood cell count decreased [Recovered/Resolved]

NARRATIVE: CASE EVENT DATE: 201512
